FAERS Safety Report 24690691 (Version 1)
Quarter: 2024Q4

REPORT INFORMATION
  Report Type: Spontaneous
  Country: US (occurrence: None)
  Receive Date: 20241202
  Receipt Date: 20241202
  Transmission Date: 20250114
  Serious: No
  Sender: Public
  Company Number: None

PATIENT
  Age: 35 Year
  Sex: Female

DRUGS (12)
  1. BOTOX [Suspect]
     Active Substance: ONABOTULINUMTOXINA
     Indication: Migraine
     Dosage: OTHER STRENGTH : UNITS;?OTHER QUANTITY : 1 VIAL;?OTHER FREQUENCY : EVERY 12 WEEKS;?
     Route: 058
     Dates: start: 20241125, end: 20241125
  2. BOTOX [Suspect]
     Active Substance: ONABOTULINUMTOXINA
     Indication: Torticollis
  3. ONDANSETRON [Concomitant]
     Active Substance: ONDANSETRON
  4. UBRELVY [Concomitant]
     Active Substance: UBROGEPANT
  5. PROPRANOLOL [Concomitant]
     Active Substance: PROPRANOLOL HYDROCHLORIDE
  6. TOPIRAMATE [Concomitant]
     Active Substance: TOPIRAMATE
  7. BUPROPION [Concomitant]
     Active Substance: BUPROPION
  8. HYDROXYZINE HYDROCHLORIDE [Concomitant]
     Active Substance: HYDROXYZINE HYDROCHLORIDE
  9. PAROXETINE [Concomitant]
     Active Substance: PAROXETINE
  10. ADVIL DUAL ACTION WITH ACETAMINOPHEN [Concomitant]
     Active Substance: ACETAMINOPHEN\IBUPROFEN
  11. women^s one-a day complete [Concomitant]
  12. nature^s way daily probiotic women^s fortify [Concomitant]

REACTIONS (12)
  - Loss of personal independence in daily activities [None]
  - Impaired work ability [None]
  - Migraine [None]
  - Dizziness [None]
  - Headache [None]
  - Dizziness [None]
  - Visual impairment [None]
  - Speech disorder [None]
  - Mental impairment [None]
  - Disturbance in attention [None]
  - Feeling abnormal [None]
  - Injection site nodule [None]

NARRATIVE: CASE EVENT DATE: 20241125
